FAERS Safety Report 12837300 (Version 1)
Quarter: 2016Q4

REPORT INFORMATION
  Report Type: Report from Study
  Country: IT (occurrence: IT)
  Receive Date: 20161011
  Receipt Date: 20161011
  Transmission Date: 20170207
  Serious: Yes (Death, Hospitalization)
  Sender: FDA-Public Use
  Company Number: IT-B.I. PHARMACEUTICALS,INC./RIDGEFIELD-2016-BI-61225BI

PATIENT
  Age: 8 Year
  Sex: Male
  Weight: 36 kg

DRUGS (3)
  1. VALPROIC ACID. [Concomitant]
     Active Substance: VALPROIC ACID
     Indication: PROPHYLAXIS
     Dosage: DOSE PER APP AND DAILY DOSE : 200MG + 400MG
     Route: 048
     Dates: start: 20160405
  2. CEFIXIME. [Concomitant]
     Active Substance: CEFIXIME
     Indication: HERPES SIMPLEX
     Route: 048
     Dates: start: 20160902
  3. AFATINIB [Suspect]
     Active Substance: AFATINIB
     Indication: EPENDYMOMA
     Route: 048
     Dates: start: 20160826

REACTIONS (1)
  - Respiratory distress [Fatal]

NARRATIVE: CASE EVENT DATE: 20160914
